FAERS Safety Report 8319219-2 (Version None)
Quarter: 2012Q2

REPORT INFORMATION
  Report Type: 
  Country: None (occurrence: None)
  Receive Date: 20120427
  Receipt Date: 20120423
  Transmission Date: 20120825
  Serious: Yes (Death)
  Sender: FDA-Public Use
  Company Number: FR-MERCK-1204FRA00109

PATIENT
  Age: 80 Year
  Sex: Male
  Weight: 82 kg

DRUGS (7)
  1. GLYBURIDE [Concomitant]
     Route: 048
     Dates: start: 20110326, end: 20110626
  2. GLYBURIDE [Concomitant]
     Route: 048
     Dates: start: 20110627, end: 20120129
  3. GLYBURIDE [Concomitant]
     Route: 048
     Dates: start: 20120130
  4. METFORMIN [Concomitant]
     Indication: TYPE 2 DIABETES MELLITUS
     Route: 048
     Dates: start: 20100226
  5. GLYBURIDE [Concomitant]
     Indication: TYPE 2 DIABETES MELLITUS
     Route: 048
     Dates: start: 20100226, end: 20110325
  6. JANUVIA [Suspect]
     Indication: TYPE 2 DIABETES MELLITUS
     Route: 048
     Dates: start: 20101206
  7. METFORMIN [Concomitant]
     Route: 048
     Dates: start: 20090101, end: 20100225

REACTIONS (3)
  - BRONCHITIS BACTERIAL [None]
  - HYPOGLYCAEMIA [None]
  - RESPIRATORY FAILURE [None]
